FAERS Safety Report 9348335 (Version 1)
Quarter: 2013Q2

REPORT INFORMATION
  Report Type: Report from Study
  Country: CO (occurrence: CO)
  Receive Date: 20130614
  Receipt Date: 20130614
  Transmission Date: 20140414
  Serious: Yes (Death)
  Sender: FDA-Public Use
  Company Number: CO-SANOFI-AVENTIS-2013SA058896

PATIENT
  Age: 68 Year
  Sex: Female

DRUGS (3)
  1. LANTUS [Suspect]
     Indication: DIABETES MELLITUS
     Dosage: DOSE:40 UNIT(S)
     Route: 058
     Dates: end: 20130421
  2. LOSARTAN [Suspect]
     Indication: HYPERTENSION
     Route: 048
     Dates: end: 20130421
  3. AMLODIPINE [Suspect]
     Indication: HYPERTENSION
     Route: 048
     Dates: end: 20130421

REACTIONS (1)
  - Renal failure chronic [Fatal]
